FAERS Safety Report 6869201-7 (Version None)
Quarter: 2010Q3

REPORT INFORMATION
  Report Type: 
  Country: None (occurrence: None)
  Receive Date: 20100722
  Receipt Date: 20080813
  Transmission Date: 20110219
  Serious: No
  Sender: FDA-Public Use
  Company Number: US-PFIZER INC-2008054562

PATIENT
  Sex: Male
  Weight: 100 kg

DRUGS (10)
  1. CHANTIX [Suspect]
     Indication: SMOKING CESSATION THERAPY
     Dates: start: 20080623
  2. ONE-A-DAY [Concomitant]
  3. VITAMIN C [Concomitant]
  4. ACETYLSALICYLIC ACID [Concomitant]
  5. KLONOPIN [Concomitant]
  6. FISH OIL [Concomitant]
  7. VITAMIN E [Concomitant]
  8. CELEXA [Concomitant]
  9. SYNTHROID [Concomitant]
  10. LIPITOR [Concomitant]

REACTIONS (2)
  - DIZZINESS [None]
  - FATIGUE [None]
